FAERS Safety Report 19169521 (Version 1)
Quarter: 2021Q2

REPORT INFORMATION
  Report Type: Spontaneous
  Country: US (occurrence: US)
  Receive Date: 20210422
  Receipt Date: 20210422
  Transmission Date: 20210717
  Serious: No
  Sender: FDA-Public Use
  Company Number: US-DERMIRA, INC.-US-2021DER000054

PATIENT
  Age: 45 Year
  Sex: Female
  Weight: 54.42 kg

DRUGS (1)
  1. QBREXZA [Suspect]
     Active Substance: GLYCOPYRRONIUM TOSYLATE
     Indication: HYPERHIDROSIS
     Dosage: UNK, UNK, QD
     Route: 061
     Dates: start: 20210317, end: 20210317

REACTIONS (4)
  - Headache [Not Recovered/Not Resolved]
  - Dry mouth [Not Recovered/Not Resolved]
  - Anhidrosis [Not Recovered/Not Resolved]
  - Feeling hot [Not Recovered/Not Resolved]

NARRATIVE: CASE EVENT DATE: 20210318
